FAERS Safety Report 7378166-3 (Version None)
Quarter: 2011Q1

REPORT INFORMATION
  Report Type: 
  Country: None (occurrence: None)
  Receive Date: 20110328
  Receipt Date: 20110318
  Transmission Date: 20110831
  Serious: Yes (Hospitalization)
  Sender: FDA-Public Use
  Company Number: A0731204A

PATIENT
  Age: 69 Year
  Sex: Female

DRUGS (6)
  1. LORATADINE [Concomitant]
  2. PAROXETINE HCL [Concomitant]
  3. FERROUS SULFATE TAB [Concomitant]
  4. AVANDIA [Suspect]
     Indication: DIABETES MELLITUS
     Route: 048
     Dates: start: 20040101, end: 20061001
  5. OMEPRAZOLE [Concomitant]
  6. THYROID MEDICATION [Concomitant]

REACTIONS (3)
  - CARDIAC FAILURE CONGESTIVE [None]
  - CEREBROVASCULAR ACCIDENT [None]
  - MYOCARDIAL INFARCTION [None]
